FAERS Safety Report 20673969 (Version 1)
Quarter: 2022Q2

REPORT INFORMATION
  Report Type: Spontaneous
  Country: IT (occurrence: IT)
  Receive Date: 20220405
  Receipt Date: 20220405
  Transmission Date: 20220721
  Serious: Yes (Other)
  Sender: FDA-Public Use
  Company Number: None

PATIENT
  Age: 42 Year
  Sex: Female

DRUGS (5)
  1. ETANERCEPT [Suspect]
     Active Substance: ETANERCEPT
     Indication: Rheumatoid arthritis
     Dosage: SOLUTION FOR INJECTION
     Route: 058
     Dates: start: 20200513
  2. ACYCLOVIR [Concomitant]
     Active Substance: ACYCLOVIR
     Indication: Oral herpes
     Route: 061
     Dates: start: 20200513
  3. DICLOFENAC SODIUM [Concomitant]
     Active Substance: DICLOFENAC SODIUM
     Indication: Rheumatoid arthritis
     Route: 048
     Dates: start: 20180720
  4. PLAQUENIL [Concomitant]
     Active Substance: HYDROXYCHLOROQUINE SULFATE
     Indication: Rheumatoid arthritis
     Route: 048
     Dates: start: 20131213
  5. LANSOPRAZOLE [Concomitant]
     Active Substance: LANSOPRAZOLE
     Indication: Prophylaxis against gastrointestinal ulcer
     Route: 048
     Dates: start: 20130805

REACTIONS (2)
  - Rheumatoid arthritis [Unknown]
  - Arthralgia [Unknown]

NARRATIVE: CASE EVENT DATE: 20200720
